FAERS Safety Report 23125146 (Version 1)
Quarter: 2023Q4

REPORT INFORMATION
  Report Type: Report from Study
  Country: EG (occurrence: EG)
  Receive Date: 20231030
  Receipt Date: 20231030
  Transmission Date: 20240110
  Serious: Yes (Other)
  Sender: FDA-Public Use
  Company Number: EG-002147023-NVSC2023EG231957

PATIENT
  Age: 46 Year
  Sex: Female

DRUGS (5)
  1. TASIGNA [Suspect]
     Active Substance: NILOTINIB
     Indication: Chronic myeloid leukaemia
     Dosage: 150 MG, BID (4 CAPSULES A DAY 2 IN THE MORNING, 2 IN THE EVENING).
     Route: 048
     Dates: start: 202303
  2. TASIGNA [Suspect]
     Active Substance: NILOTINIB
     Dosage: 150 MG, BID (STOPPED A WEEK AGO, 4 CAPSULES A DAY 2 IN THE MORNING, 2 IN THE EVENING).
     Route: 048
     Dates: end: 20231024
  3. KAPRON [Concomitant]
     Indication: Haemorrhage
     Dosage: UNK, PRN (STARTED A WEEK AGO AND STOPPED 3 DAYS AGO, WHEN REQUIRED)
     Route: 065
  4. DAFLON [Concomitant]
     Indication: Haemorrhage
     Dosage: UNK, PRN (STARTED A WEEK AGO AND STOPPED 3 DAYS AGO, WHEN REQUIRED)
     Route: 065
  5. IRON [Concomitant]
     Active Substance: IRON
     Indication: Haemorrhage
     Dosage: UNK, PRN (STARTED A WEEK AGO AND STOPPED 3 DAYS AGO, WHEN REQUIRED)
     Route: 065

REACTIONS (5)
  - Angina pectoris [Not Recovered/Not Resolved]
  - Thrombosis [Recovered/Resolved]
  - Pain [Not Recovered/Not Resolved]
  - Bone pain [Not Recovered/Not Resolved]
  - Heavy menstrual bleeding [Recovered/Resolved]

NARRATIVE: CASE EVENT DATE: 20230301
